FAERS Safety Report 15156349 (Version 1)
Quarter: 2018Q3

REPORT INFORMATION
  Report Type: Spontaneous
  Country: RU (occurrence: RU)
  Receive Date: 20180717
  Receipt Date: 20180717
  Transmission Date: 20181010
  Serious: Yes (Other)
  Sender: FDA-Public Use
  Company Number: RU-009507513-1807RUS002927

PATIENT
  Age: 43 Year
  Sex: Female

DRUGS (2)
  1. NASONEX [Suspect]
     Active Substance: MOMETASONE FUROATE
     Dosage: 1 SPRAY
     Route: 045
  2. THROMBO ASS [Concomitant]
     Active Substance: ASPIRIN
     Indication: ANTICOAGULANT THERAPY

REACTIONS (5)
  - Oedema [Unknown]
  - Hypertensive crisis [Unknown]
  - Burning sensation [Unknown]
  - Secretion discharge [Unknown]
  - Hyperaemia [Unknown]
